FAERS Safety Report 9036264 (Version 1)
Quarter: 2013Q1

REPORT INFORMATION
  Report Type: Report from Study
  Country: US (occurrence: US)
  Receive Date: 20130129
  Receipt Date: 20130129
  Transmission Date: 20140127
  Serious: No
  Sender: FDA-Public Use
  Company Number: US-ABBOTT-12P-163-0892822-00

PATIENT
  Age: 87 Year
  Sex: Female

DRUGS (5)
  1. HUMIRA 40 MG/0.8 ML PEN [Suspect]
     Indication: REITER^S SYNDROME
     Dates: start: 20120112
  2. METHOTREXATE [Concomitant]
     Indication: PRODUCT USED FOR UNKNOWN INDICATION
     Dosage: WEEKLY
     Route: 050
  3. PREDNISONE [Concomitant]
     Indication: PRODUCT USED FOR UNKNOWN INDICATION
     Route: 048
  4. PERCOCET [Concomitant]
     Indication: PAIN
     Dosage: USUALLY TAKES 2 DAILY
  5. VICODIN [Concomitant]
     Indication: PAIN
     Dosage: USUALLY 1 DAILY

REACTIONS (3)
  - Injection site pain [Recovering/Resolving]
  - Medication error [Unknown]
  - Cystitis [Unknown]
